FAERS Safety Report 7889604-1 (Version None)
Quarter: 2011Q4

REPORT INFORMATION
  Report Type: 
  Country: None (occurrence: None)
  Receive Date: 20111103
  Receipt Date: 20110804
  Transmission Date: 20120403
  Serious: No
  Sender: FDA-Public Use
  Company Number: US-BRISTOL-MYERS SQUIBB COMPANY-15947807

PATIENT

DRUGS (1)
  1. KENALOG-40 [Suspect]
     Route: 008

REACTIONS (1)
  - MEDICATION ERROR [None]
